FAERS Safety Report 5146513-9 (Version None)
Quarter: 2006Q4

REPORT INFORMATION
  Report Type: 
  Country: None (occurrence: None)
  Receive Date: 20061109
  Receipt Date: 20061030
  Transmission Date: 20070319
  Serious: Yes (Other)
  Sender: FDA-Public Use
  Company Number: US-JNJFOC-20060704573

PATIENT
  Sex: Female
  Weight: 55.34 kg

DRUGS (5)
  1. REMICADE [Suspect]
     Route: 042
  2. REMICADE [Suspect]
     Indication: CROHN'S DISEASE
     Route: 042
  3. AZATHIOPRINE [Concomitant]
  4. ENTOCORT [Concomitant]
     Route: 048
  5. XIFAXIN [Concomitant]

REACTIONS (4)
  - ERYTHEMA NODOSUM [None]
  - INFECTION [None]
  - INFUSION RELATED REACTION [None]
  - PARAESTHESIA [None]
